FAERS Safety Report 8964948 (Version 2)
Quarter: 2013Q2

REPORT INFORMATION
  Report Type: Report from Study
  Country: AU (occurrence: AU)
  Receive Date: 20121214
  Receipt Date: 20130626
  Transmission Date: 20140414
  Serious: Yes (Hospitalization, Disabling)
  Sender: FDA-Public Use
  Company Number: AU-ROCHE-1167937

PATIENT
  Age: 83 Year
  Sex: Male
  Weight: 87 kg

DRUGS (3)
  1. RANIBIZUMAB [Suspect]
     Indication: PRODUCT USED FOR UNKNOWN INDICATION
     Dosage: 0.5 MG IN 0.05 ML
     Route: 050
     Dates: start: 20081211
  2. RANIBIZUMAB [Suspect]
     Route: 050
     Dates: start: 20110803
  3. AVAPRO [Concomitant]
     Route: 065
     Dates: start: 2004

REACTIONS (1)
  - Ischaemic stroke [Not Recovered/Not Resolved]
